FAERS Safety Report 8258342-8 (Version None)
Quarter: 2012Q1

REPORT INFORMATION
  Report Type: 
  Country: None (occurrence: None)
  Receive Date: 20120322
  Receipt Date: 20120202
  Transmission Date: 20120608
  Serious: Yes (Hospitalization)
  Sender: FDA-Public Use
  Company Number: UTC-014930

PATIENT
  Age: 63 Year
  Sex: Male
  Weight: 136.3 kg

DRUGS (3)
  1. ADCIRCA [Concomitant]
  2. LETAIRIS [Concomitant]
  3. TYVASO [Suspect]
     Indication: PULMONARY ARTERIAL HYPERTENSION
     Dosage: 54 MCG, INHALATION
     Dates: start: 20100629

REACTIONS (2)
  - TRACHEAL OBSTRUCTION [None]
  - RESPIRATORY TRACT CONGESTION [None]
